FAERS Safety Report 11582102 (Version 1)
Quarter: 2015Q4

REPORT INFORMATION
  Report Type: Spontaneous
  Country: US (occurrence: US)
  Receive Date: 20151001
  Receipt Date: 20151001
  Transmission Date: 20160304
  Serious: No
  Sender: FDA-Public Use
  Company Number: US-ROCHE-695104

PATIENT
  Age: 48 Year
  Sex: Female

DRUGS (2)
  1. RIBAVIRIN. [Suspect]
     Active Substance: RIBAVIRIN
     Indication: HEPATITIS C
     Dosage: IN DIVIDED DOSES, FORM: WHITE CAPSULE
     Route: 065
  2. PEGASYS [Suspect]
     Active Substance: PEGINTERFERON ALFA-2A
     Indication: HEPATITIS C
     Dosage: FORM: PRE-FILLED SYRINGE
     Route: 065

REACTIONS (10)
  - Pain [Recovering/Resolving]
  - White blood cell count decreased [Unknown]
  - Menopausal symptoms [Unknown]
  - Fatigue [Unknown]
  - Platelet count decreased [Unknown]
  - Nausea [Recovered/Resolved]
  - Dysgeusia [Unknown]
  - Headache [Unknown]
  - Night sweats [Unknown]
  - Weight decreased [Recovering/Resolving]

NARRATIVE: CASE EVENT DATE: 20100204
